FAERS Safety Report 4554925-7 (Version None)
Quarter: 2004Q4

REPORT INFORMATION
  Report Type: 
  Country: None (occurrence: None)
  Receive Date: 20041222
  Receipt Date: 20040830
  Transmission Date: 20050328
  Serious: Yes (Other)
  Sender: FDA-Public Use
  Company Number: 208638

PATIENT
  Age: 66 Year
  Sex: Male
  Weight: 133 kg

DRUGS (2)
  1. AVASTIN [Suspect]
     Indication: COLORECTAL CANCER METASTATIC
     Dosage: 570 MG, Q2W, INTRAVENOUS
     Route: 042
     Dates: start: 20040628, end: 20040823
  2. COUMADIN [Concomitant]

REACTIONS (1)
  - GASTROINTESTINAL HAEMORRHAGE [None]
